FAERS Safety Report 9556125 (Version 1)
Quarter: 2013Q3

REPORT INFORMATION
  Report Type: Spontaneous
  Country: US (occurrence: None)
  Receive Date: 20130726
  Receipt Date: 20130726
  Transmission Date: 20140515
  Serious: Yes (Hospitalization)
  Sender: FDA-Public Use
  Company Number: UTC-023026

PATIENT
  Age: 71 Year
  Sex: Female
  Weight: 53.64 kg

DRUGS (2)
  1. REMODULIN [Suspect]
     Indication: COR PULMONALE CHRONIC
     Dosage: 60.48 UG/KG(0.042 UG/KG, 1IN 1 MIN)
     Route: 041
     Dates: start: 20120301
  2. LETAIRIS (AMBRISENTAN) (TABLETS) [Concomitant]

REACTIONS (1)
  - Device related infection [None]
